FAERS Safety Report 18203996 (Version 1)
Quarter: 2020Q3

REPORT INFORMATION
  Report Type: Spontaneous
  Country: AU (occurrence: AU)
  Receive Date: 20200827
  Receipt Date: 20200827
  Transmission Date: 20201103
  Serious: Yes (Death, Hospitalization, Other)
  Sender: FDA-Public Use
  Company Number: AU-AMGEN-AUSSP2020134429

PATIENT

DRUGS (4)
  1. CINACALCET HCL [Suspect]
     Active Substance: CINACALCET HYDROCHLORIDE
     Indication: HYPERPARATHYROIDISM
     Dosage: UNK
     Route: 065
  2. CHOLECALCIFEROL [Concomitant]
     Active Substance: CHOLECALCIFEROL
  3. CALCIUM CARBONATE. [Concomitant]
     Active Substance: CALCIUM CARBONATE
  4. CALCITRIOL. [Concomitant]
     Active Substance: CALCITRIOL
     Dosage: 0.25 MICROGRAM, QD, 10 TABLETS
     Route: 048

REACTIONS (25)
  - Hypocalcaemia [Unknown]
  - Jugular vein thrombosis [Unknown]
  - Embolic stroke [Fatal]
  - Atrial fibrillation [Unknown]
  - Acute kidney injury [Unknown]
  - Gastroenteritis [Unknown]
  - Skin necrosis [Unknown]
  - Sepsis [Unknown]
  - Arteriovenous fistula thrombosis [Unknown]
  - Diarrhoea [Unknown]
  - Electrolyte imbalance [Unknown]
  - Hypertension [Unknown]
  - Hyperkalaemia [Unknown]
  - Hypercalcaemia [Unknown]
  - Atrial flutter [Unknown]
  - Death [Fatal]
  - Arrhythmia [Unknown]
  - Infection [Unknown]
  - Peritonitis [Unknown]
  - Pneumonia [Unknown]
  - Cardiovascular disorder [Unknown]
  - Fall [Unknown]
  - Hungry bone syndrome [Unknown]
  - Haemorrhage [Unknown]
  - Acute myocardial infarction [Unknown]
